FAERS Safety Report 18494492 (Version 7)
Quarter: 2022Q2

REPORT INFORMATION
  Report Type: Report from Study
  Country: CO (occurrence: CO)
  Receive Date: 20201112
  Receipt Date: 20220513
  Transmission Date: 20220721
  Serious: Yes (Other)
  Sender: FDA-Public Use
  Company Number: CO-ABBVIE-20K-036-3645954-00

PATIENT
  Sex: Female

DRUGS (5)
  1. HUMIRA [Suspect]
     Active Substance: ADALIMUMAB
     Indication: Rheumatoid arthritis
     Route: 058
     Dates: start: 20150806
  2. HUMIRA [Suspect]
     Active Substance: ADALIMUMAB
     Indication: Rheumatoid arthritis
     Route: 058
     Dates: end: 20210113
  3. HUMIRA [Suspect]
     Active Substance: ADALIMUMAB
     Route: 058
     Dates: start: 2021, end: 20210724
  4. ZOLEDRONIC ACID [Concomitant]
     Active Substance: ZOLEDRONIC ACID
     Indication: Rheumatoid arthritis
     Dosage: EVERY YEAR
     Route: 042
  5. ZOLEDRONIC ACID [Concomitant]
     Active Substance: ZOLEDRONIC ACID
     Indication: Osteoporosis

REACTIONS (15)
  - Deafness bilateral [Not Recovered/Not Resolved]
  - Inflammation [Recovering/Resolving]
  - Hypoacusis [Not Recovered/Not Resolved]
  - Otorrhoea [Not Recovered/Not Resolved]
  - Ear infection [Not Recovered/Not Resolved]
  - Body height decreased [Not Recovered/Not Resolved]
  - Osteoporosis [Not Recovered/Not Resolved]
  - Chills [Not Recovered/Not Resolved]
  - Ear pain [Not Recovered/Not Resolved]
  - Ear pain [Not Recovered/Not Resolved]
  - Pyrexia [Not Recovered/Not Resolved]
  - Ear swelling [Not Recovered/Not Resolved]
  - Ear inflammation [Not Recovered/Not Resolved]
  - Hypertension [Recovering/Resolving]
  - Stress [Recovering/Resolving]

NARRATIVE: CASE EVENT DATE: 20170101
